FAERS Safety Report 7005526-2 (Version None)
Quarter: 2010Q3

REPORT INFORMATION
  Report Type: 
  Country: None (occurrence: None)
  Receive Date: 20100902
  Receipt Date: 20100506
  Transmission Date: 20110219
  Serious: Yes (Disabling, Other)
  Sender: FDA-Public Use
  Company Number: 234061USA

PATIENT
  Sex: Female

DRUGS (2)
  1. METOCLOPRAMIDE [Suspect]
     Indication: ABDOMINAL PAIN
     Dosage: (10 MG)
     Dates: start: 20080101, end: 20081201
  2. METOCLOPRAMIDE [Suspect]
     Indication: GASTROINTESTINAL DISORDER
     Dosage: (10 MG)
     Dates: start: 20080101, end: 20081201

REACTIONS (1)
  - TARDIVE DYSKINESIA [None]
